FAERS Safety Report 18143290 (Version 1)
Quarter: 2020Q3

REPORT INFORMATION
  Report Type: Spontaneous
  Country: RU (occurrence: RU)
  Receive Date: 20200812
  Receipt Date: 20200812
  Transmission Date: 20201103
  Serious: Yes (Other)
  Sender: FDA-Public Use
  Company Number: RU-SEATTLE GENETICS-2020SGN03517

PATIENT

DRUGS (1)
  1. ADCETRIS [Suspect]
     Active Substance: BRENTUXIMAB VEDOTIN
     Indication: HODGKIN^S DISEASE REFRACTORY
     Dosage: 1.8 MG/KG, Q3WEEKS
     Route: 065

REACTIONS (3)
  - Respiratory failure [Unknown]
  - Agranulocytosis [Unknown]
  - Sepsis [Unknown]
